FAERS Safety Report 24931955 (Version 1)
Quarter: 2025Q1

REPORT INFORMATION
  Report Type: Spontaneous
  Country: FR (occurrence: FR)
  Receive Date: 20250205
  Receipt Date: 20250205
  Transmission Date: 20250408
  Serious: No
  Sender: EXELIXIS
  Company Number: None

PATIENT
  Age: 68 Year
  Sex: Male

DRUGS (1)
  1. CABOMETYX [Suspect]
     Active Substance: CABOZANTINIB S-MALATE
     Indication: Adenocarcinoma
     Dosage: 20 MG, QD
     Route: 048
     Dates: start: 20220901, end: 20230901

REACTIONS (1)
  - Penis injury [Recovered/Resolved]

NARRATIVE: CASE EVENT DATE: 20231129
